FAERS Safety Report 13491036 (Version 1)
Quarter: 2017Q2

REPORT INFORMATION
  Report Type: Spontaneous
  Country: IT (occurrence: IT)
  Receive Date: 20170427
  Receipt Date: 20170427
  Transmission Date: 20170830
  Serious: Yes (Hospitalization)
  Sender: FDA-Public Use
  Company Number: IT-ELI_LILLY_AND_COMPANY-IT201704009893

PATIENT
  Age: 51 Year
  Sex: Female

DRUGS (7)
  1. HUMALOG [Suspect]
     Active Substance: INSULIN LISPRO
     Indication: TYPE 2 DIABETES MELLITUS
     Dosage: 6 IU, QD
     Route: 058
     Dates: start: 20170324, end: 20170331
  2. GABAPENTIN. [Concomitant]
     Active Substance: GABAPENTIN
     Dosage: 1200 MG, UNK
     Route: 048
     Dates: start: 20170324
  3. PALEXIA [Suspect]
     Active Substance: TAPENTADOL HYDROCHLORIDE
     Indication: BACK PAIN
     Dosage: 600 MG, UNK
     Route: 048
     Dates: start: 20170324, end: 20170331
  4. HUMALOG [Suspect]
     Active Substance: INSULIN LISPRO
     Dosage: 14 IU, QD
     Route: 058
     Dates: start: 20170324, end: 20170331
  5. LEVEMIR [Suspect]
     Active Substance: INSULIN DETEMIR
     Indication: TYPE 2 DIABETES MELLITUS
     Dosage: UNK, QD
     Route: 058
     Dates: start: 20170324, end: 20170331
  6. CONTRAMAL [Concomitant]
     Active Substance: TRAMADOL HYDROCHLORIDE
     Dosage: 30 DF, UNK
     Route: 048
     Dates: start: 20170324, end: 20170331
  7. HUMALOG [Suspect]
     Active Substance: INSULIN LISPRO
     Dosage: 12 IU, QD
     Route: 058

REACTIONS (8)
  - Hypoglycaemia [Recovering/Resolving]
  - Back pain [Unknown]
  - Nausea [Unknown]
  - Epigastric discomfort [Unknown]
  - Dizziness [Unknown]
  - Loss of consciousness [Unknown]
  - Decreased appetite [Unknown]
  - Malnutrition [Unknown]

NARRATIVE: CASE EVENT DATE: 201703
